FAERS Safety Report 20428646 (Version 1)
Quarter: 2022Q1

REPORT INFORMATION
  Report Type: Spontaneous
  Country: ES (occurrence: ES)
  Receive Date: 20220204
  Receipt Date: 20220204
  Transmission Date: 20220423
  Serious: Yes (Disabling, Congenital Anomaly)
  Sender: FDA-Public Use
  Company Number: ES-ABBVIE-22K-144-4264636-00

PATIENT
  Sex: Male

DRUGS (2)
  1. VALPROATE SODIUM [Suspect]
     Active Substance: VALPROATE SODIUM
     Indication: Maternal exposure timing unspecified
     Route: 064
  2. FOLIC ACID [Concomitant]
     Active Substance: FOLIC ACID
     Indication: Maternal exposure timing unspecified
     Route: 064

REACTIONS (4)
  - Deafness [Not Recovered/Not Resolved]
  - Neurodevelopmental disorder [Not Recovered/Not Resolved]
  - Autism spectrum disorder [Not Recovered/Not Resolved]
  - Foetal exposure during pregnancy [Unknown]

NARRATIVE: CASE EVENT DATE: 20081009
